FAERS Safety Report 6904075-7 (Version None)
Quarter: 2010Q3

REPORT INFORMATION
  Report Type: 
  Country: None (occurrence: None)
  Receive Date: 20100804
  Receipt Date: 20090305
  Transmission Date: 20110219
  Serious: Yes (Other)
  Sender: FDA-Public Use
  Company Number: US-PFIZER INC-2009163463

PATIENT
  Sex: Female
  Weight: 65.76 kg

DRUGS (7)
  1. LYRICA [Suspect]
     Indication: CARPAL TUNNEL SYNDROME
     Dates: start: 20081201, end: 20090101
  2. LYRICA [Suspect]
     Indication: DIABETIC NEUROPATHY
  3. METFORMIN [Concomitant]
     Dosage: UNK
  4. GLIPIZIDE [Concomitant]
     Dosage: UNK
  5. ZETIA [Concomitant]
     Dosage: UNK
  6. LOVASTATIN [Concomitant]
     Dosage: UNK
  7. ALTACE [Concomitant]
     Dosage: UNK

REACTIONS (1)
  - HALLUCINATION [None]
